FAERS Safety Report 23030492 (Version 2)
Quarter: 2023Q4

REPORT INFORMATION
  Report Type: Spontaneous
  Country: US (occurrence: US)
  Receive Date: 20231005
  Receipt Date: 20231205
  Transmission Date: 20240109
  Serious: Yes (Hospitalization, Other)
  Sender: FDA-Public Use
  Company Number: US-SAREPTA THERAPEUTICS INC.-SRP2023-003830

PATIENT
  Age: 19 Year
  Sex: Male
  Weight: 88.44 kg

DRUGS (11)
  1. AMONDYS 45 [Suspect]
     Active Substance: CASIMERSEN
     Indication: Duchenne muscular dystrophy
     Dosage: 2600 MILLIGRAM, WEEKLY
     Route: 042
     Dates: start: 20220929
  2. CARVEDILOL [Concomitant]
     Active Substance: CARVEDILOL
     Indication: Duchenne muscular dystrophy
     Dosage: 15.625 MILLIGRAM, (TABLET 3.125 MG TWICE WITH 12.5 TABLET), BID
     Route: 048
     Dates: start: 20220207
  3. CARVEDILOL [Concomitant]
     Active Substance: CARVEDILOL
     Dosage: 15.625 MILLIGRAM, (TABLET 12.5 MG TWICE WITH 3.125 TABLET), BID
     Route: 048
  4. NAPROXEN [Concomitant]
     Active Substance: NAPROXEN
     Indication: Duchenne muscular dystrophy
     Dosage: 250 MILLIGRAM
     Route: 048
     Dates: start: 20220207
  5. LISINOPRIL [Concomitant]
     Active Substance: LISINOPRIL
     Indication: Duchenne muscular dystrophy
     Dosage: 10 MILLIGRAM, QD
     Route: 048
     Dates: start: 20220207
  6. ZOMETA [Concomitant]
     Active Substance: ZOLEDRONIC ACID
     Indication: Duchenne muscular dystrophy
     Dosage: 4 MILLIGRAM, EVERY 6 MONTH
     Route: 042
     Dates: start: 20220207
  7. OMEPRAZOLE [Concomitant]
     Active Substance: OMEPRAZOLE
     Indication: Duchenne muscular dystrophy
     Dosage: 20 MILLIGRAM, QD
     Route: 048
     Dates: start: 20220207
  8. CHOLECALCIFEROL [Concomitant]
     Active Substance: CHOLECALCIFEROL
     Indication: Duchenne muscular dystrophy
     Dosage: UNK
     Route: 048
     Dates: start: 20220207
  9. EMFLAZA [Concomitant]
     Active Substance: DEFLAZACORT
     Indication: Duchenne muscular dystrophy
     Dosage: 6 MILLIGRAM, QD
     Route: 048
     Dates: start: 20220207
  10. EMFLAZA [Concomitant]
     Active Substance: DEFLAZACORT
     Dosage: 12 MILLIGRAM, QD
     Route: 048
     Dates: start: 20220207
  11. IBUPROFEN [Concomitant]
     Active Substance: IBUPROFEN
     Indication: Duchenne muscular dystrophy
     Dosage: 400 MILLIGRAM, AS NEEDED
     Route: 048
     Dates: start: 20220207

REACTIONS (1)
  - Pneumonia [Recovered/Resolved]

NARRATIVE: CASE EVENT DATE: 20230925
